FAERS Safety Report 8028436-0 (Version None)
Quarter: 2012Q1

REPORT INFORMATION
  Report Type: 
  Country: None (occurrence: None)
  Receive Date: 20120106
  Receipt Date: 20120105
  Transmission Date: 20120608
  Serious: Yes (Death, Hospitalization)
  Sender: FDA-Public Use
  Company Number: US-SANOFI-AVENTIS-2011SA079031

PATIENT

DRUGS (3)
  1. ANTITHROMBOTIC AGENTS [Suspect]
     Route: 048
  2. ANTITHROMBOTIC AGENTS [Suspect]
     Route: 048
  3. LOVENOX [Suspect]

REACTIONS (2)
  - DEATH [None]
  - JOINT ARTHROPLASTY [None]
